FAERS Safety Report 6633245-0 (Version None)
Quarter: 2010Q1

REPORT INFORMATION
  Report Type: 
  Country: None (occurrence: None)
  Receive Date: 20100312
  Receipt Date: 20100304
  Transmission Date: 20100710
  Serious: Yes (Hospitalization, Other)
  Sender: FDA-Public Use
  Company Number: US-AMGEN-QUU397650

PATIENT
  Sex: Female

DRUGS (1)
  1. ENBREL [Suspect]
     Indication: RHEUMATOID ARTHRITIS
     Route: 058
     Dates: start: 20060901

REACTIONS (5)
  - INCISION SITE INFECTION [None]
  - INJECTION SITE HAEMATOMA [None]
  - KNEE ARTHROPLASTY [None]
  - PAIN [None]
  - SPINAL COLUMN STENOSIS [None]
